FAERS Safety Report 8217385-0 (Version None)
Quarter: 2012Q1

REPORT INFORMATION
  Report Type: 
  Country: None (occurrence: None)
  Receive Date: 20120319
  Receipt Date: 20120309
  Transmission Date: 20120608
  Serious: Yes (Other)
  Sender: FDA-Public Use
  Company Number: GB-SP-2012-02770

PATIENT

DRUGS (2)
  1. INTRON A [Suspect]
     Route: 050
  2. IMMUCYST [Suspect]
     Indication: ACCIDENTAL EXPOSURE
     Route: 050

REACTIONS (5)
  - LOWER RESPIRATORY TRACT INFECTION [None]
  - DRUG DISPENSING ERROR [None]
  - BRONCHITIS [None]
  - COUGH [None]
  - OCCUPATIONAL EXPOSURE TO DRUG [None]
